FAERS Safety Report 5227613-1 (Version None)
Quarter: 2007Q1

REPORT INFORMATION
  Report Type: 
  Country: None (occurrence: None)
  Receive Date: 20070202
  Receipt Date: 20070201
  Transmission Date: 20070707
  Serious: Yes (Death, Hospitalization)
  Sender: FDA-Public Use
  Company Number: US-BRISTOL-MYERS SQUIBB COMPANY-13612569

PATIENT
  Age: 67 Year
  Sex: Male
  Weight: 87 kg

DRUGS (8)
  1. CETUXIMAB [Suspect]
     Indication: NON-SMALL CELL LUNG CANCER
     Route: 042
     Dates: start: 20061031, end: 20061205
  2. DOCETAXEL [Suspect]
     Indication: NON-SMALL CELL LUNG CANCER
     Route: 042
     Dates: start: 20061031, end: 20061128
  3. GEMCITABINE [Suspect]
     Indication: NON-SMALL CELL LUNG CANCER
     Route: 042
     Dates: start: 20061031, end: 20061128
  4. MINOCYCLINE HCL [Concomitant]
     Indication: RASH
     Dates: start: 20061101, end: 20061211
  5. OMEPRAZOLE [Concomitant]
     Indication: DYSPEPSIA
     Dates: start: 20061101, end: 20061201
  6. ALLOPURINOL SODIUM [Concomitant]
     Indication: GOUT
     Dates: end: 20061201
  7. AMBIEN CR [Concomitant]
     Indication: INSOMNIA
     Dates: end: 20061201
  8. LORAZEPAM [Concomitant]
     Indication: ANXIETY
     Dates: end: 20061201

REACTIONS (6)
  - CHILLS [None]
  - DEEP VEIN THROMBOSIS [None]
  - LUNG INFILTRATION [None]
  - PNEUMOTHORAX [None]
  - PYREXIA [None]
  - RESPIRATORY FAILURE [None]
